FAERS Safety Report 23356023 (Version 1)
Quarter: 2024Q1

REPORT INFORMATION
  Report Type: Spontaneous
  Country: CN (occurrence: CN)
  Receive Date: 20240102
  Receipt Date: 20240102
  Transmission Date: 20240409
  Serious: Yes (Other)
  Sender: FDA-Public Use
  Company Number: None

PATIENT
  Age: 42 Year
  Sex: Female
  Weight: 50 kg

DRUGS (4)
  1. CYCLOPHOSPHAMIDE [Suspect]
     Active Substance: CYCLOPHOSPHAMIDE
     Indication: Invasive breast carcinoma
     Dosage: 0.8 G, ONE TIME IN ONE DAY(IMPORTED) (HIGH WARNING B), DILUTED WITH 40 ML OF 0.9% SODIUM CHLORIDE, C
     Route: 041
     Dates: start: 20231219, end: 20231219
  2. PIRARUBICIN HYDROCHLORIDE [Suspect]
     Active Substance: PIRARUBICIN HYDROCHLORIDE
     Indication: Invasive breast carcinoma
     Dosage: 70 MG, ONE TIME IN ONE DAY(HIGH WARNING B), DILUTED WITH 40 ML OF 5% GLUCOSE, CHEMOTHERAPY DRUG GROU
     Route: 041
     Dates: start: 20231219, end: 20231219
  3. SODIUM CHLORIDE [Suspect]
     Active Substance: SODIUM CHLORIDE
     Indication: Invasive breast carcinoma
     Dosage: 40 ML, ONE TIME IN ONE DAY(100ML:0.9G) (SICHUAN) (HIGH WARNING B), USED TO DILUTE 0.8 G OF CYCLOPHOS
     Route: 041
     Dates: start: 20231219, end: 20231219
  4. DEXTROSE [Suspect]
     Active Substance: DEXTROSE\DEXTROSE MONOHYDRATE
     Indication: Invasive breast carcinoma
     Dosage: 40 ML, ONE TIME IN ONE DAY(100ML:5G) (HIGH WARNING B), USED TO DILUTE 70 MG OF PIRARUBICIN HYDROCHLO
     Route: 041
     Dates: start: 20231219, end: 20231219

REACTIONS (5)
  - Gastrointestinal disorder [Recovering/Resolving]
  - Nausea [Recovering/Resolving]
  - Vomiting [Recovering/Resolving]
  - Dysphagia [Recovering/Resolving]
  - Appetite disorder [Recovering/Resolving]

NARRATIVE: CASE EVENT DATE: 20231220
